FAERS Safety Report 13208405 (Version 1)
Quarter: 2017Q1

REPORT INFORMATION
  Report Type: Spontaneous
  Country: US (occurrence: US)
  Receive Date: 20170209
  Receipt Date: 20170209
  Transmission Date: 20170428
  Serious: No
  Sender: FDA-Public Use
  Company Number: US-ROCHE-1727394

PATIENT
  Age: 63 Year
  Sex: Male

DRUGS (17)
  1. PREDNISOLONE ACETATE. [Concomitant]
     Active Substance: PREDNISOLONE ACETATE
  2. PROVENTIL HFA [Concomitant]
     Active Substance: ALBUTEROL SULFATE
  3. FLURBIPROFEN SODIUM. [Concomitant]
     Active Substance: FLURBIPROFEN SODIUM
  4. GENTAMICIN SULFATE. [Concomitant]
     Active Substance: GENTAMICIN SULFATE
  5. IPRATROPIUM BROMIDE. [Concomitant]
     Active Substance: IPRATROPIUM BROMIDE
  6. ATORVASTATIN [Concomitant]
     Active Substance: ATORVASTATIN
  7. METOPROLOL. [Concomitant]
     Active Substance: METOPROLOL
  8. ALBUTEROL SULFATE. [Concomitant]
     Active Substance: ALBUTEROL SULFATE
  9. ACETAMINOPHEN/OXYCODONE [Concomitant]
     Active Substance: ACETAMINOPHEN\OXYCODONE HYDROCHLORIDE
  10. XOLAIR [Suspect]
     Active Substance: OMALIZUMAB
     Indication: HYPOGAMMAGLOBULINAEMIA
     Route: 058
     Dates: start: 20130220
  11. ZAFIRLUKAST. [Concomitant]
     Active Substance: ZAFIRLUKAST
  12. LISINOPRIL. [Concomitant]
     Active Substance: LISINOPRIL
  13. EPIPEN [Concomitant]
     Active Substance: EPINEPHRINE
  14. ACETAMINOPHEN/HYDROCODONE [Concomitant]
     Active Substance: ACETAMINOPHEN\HYDROCODONE
  15. CLOPIDOGREL [Concomitant]
     Active Substance: CLOPIDOGREL BISULFATE
  16. NITROSTAT [Concomitant]
     Active Substance: NITROGLYCERIN
  17. ADVAIR HFA [Concomitant]
     Active Substance: FLUTICASONE PROPIONATE\SALMETEROL XINAFOATE

REACTIONS (1)
  - Contusion [Not Recovered/Not Resolved]

NARRATIVE: CASE EVENT DATE: 20160315
